FAERS Safety Report 15805200 (Version 1)
Quarter: 2019Q1

REPORT INFORMATION
  Report Type: Spontaneous
  Country: US (occurrence: US)
  Receive Date: 20190110
  Receipt Date: 20190110
  Transmission Date: 20190417
  Serious: Yes (Hospitalization)
  Sender: FDA-Public Use
  Company Number: US-TEVA-2019-US-994607

PATIENT
  Age: 64 Year
  Sex: Female

DRUGS (4)
  1. CYCLOSPORINE. [Suspect]
     Active Substance: CYCLOSPORINE
     Indication: IMMUNOSUPPRESSANT DRUG THERAPY
     Route: 065
  2. CEPHALEXIN. [Suspect]
     Active Substance: CEPHALEXIN
     Indication: CELLULITIS
     Route: 065
  3. AZATHIOPRINE. [Suspect]
     Active Substance: AZATHIOPRINE
     Route: 065
  4. FAMOTIDINE. [Concomitant]
     Active Substance: FAMOTIDINE
     Route: 065

REACTIONS (1)
  - Clostridium difficile infection [Recovered/Resolved]
